FAERS Safety Report 4959279-X (Version None)
Quarter: 2006Q1

REPORT INFORMATION
  Report Type: 
  Country: None (occurrence: None)
  Receive Date: 20060331
  Receipt Date: 20060217
  Transmission Date: 20060701
  Serious: Yes (Hospitalization)
  Sender: FDA-Public Use
  Company Number: FR-JNJFOC-20060307220

PATIENT
  Age: 71 Year
  Sex: Female

DRUGS (8)
  1. DOXORUBICIN HCL [Suspect]
     Indication: B-CELL LYMPHOMA
     Route: 042
  2. ENDOXAN [Suspect]
     Indication: B-CELL LYMPHOMA
     Route: 042
  3. MABTHERA [Suspect]
     Indication: B-CELL LYMPHOMA
     Route: 042
  4. VINCRISTINE [Suspect]
     Indication: B-CELL LYMPHOMA
     Route: 042
  5. POLARAMINE [Suspect]
     Indication: PREMEDICATION
     Route: 042
  6. CORTANCYL [Suspect]
     Indication: DRUG USE FOR UNKNOWN INDICATION
     Route: 048
  7. SOLU-MEDROL [Concomitant]
     Route: 042
  8. ZOPHREN [Concomitant]
     Route: 042

REACTIONS (3)
  - BONE MARROW FAILURE [None]
  - LIVER ABSCESS [None]
  - SEPSIS [None]
